FAERS Safety Report 7714753-8 (Version None)
Quarter: 2011Q3

REPORT INFORMATION
  Report Type: 
  Country: None (occurrence: None)
  Receive Date: 20110822
  Receipt Date: 20110804
  Transmission Date: 20111222
  Serious: Yes (Death, Other)
  Sender: FDA-Public Use
  Company Number: 2011MA011481

PATIENT
  Age: 34 Year

DRUGS (3)
  1. OXAZEPAM [Suspect]
     Indication: PRODUCT USED FOR UNKNOWN INDICATION
  2. METHADONE HCL [Suspect]
     Indication: PRODUCT USED FOR UNKNOWN INDICATION
     Dosage: 0.6 MG/L
  3. NORDIAZEPAM (NO PREF. NAME) [Suspect]
     Indication: PRODUCT USED FOR UNKNOWN INDICATION

REACTIONS (8)
  - PULMONARY OEDEMA [None]
  - TOXICITY TO VARIOUS AGENTS [None]
  - PULMONARY CONGESTION [None]
  - DRUG INTOLERANCE [None]
  - VOMITING [None]
  - BRONCHIOLITIS [None]
  - MULTIPLE DRUG OVERDOSE [None]
  - ASPIRATION [None]
